FAERS Safety Report 13591218 (Version 1)
Quarter: 2017Q2

REPORT INFORMATION
  Report Type: Report from Study
  Country: US (occurrence: US)
  Receive Date: 20170529
  Receipt Date: 20170529
  Transmission Date: 20170830
  Serious: Yes (Death, Other)
  Sender: FDA-Public Use
  Company Number: US-TAKEDA-2017TUS011804

PATIENT
  Sex: Female

DRUGS (1)
  1. DEXLANSOPRAZOLE [Suspect]
     Active Substance: DEXLANSOPRAZOLE
     Indication: GASTRIC DISORDER
     Dosage: 60 MG, UNK
     Route: 065

REACTIONS (2)
  - Lung neoplasm malignant [Fatal]
  - Off label use [Unknown]
